FAERS Safety Report 13302950 (Version 1)
Quarter: 2017Q1

REPORT INFORMATION
  Report Type: Report from Study
  Country: ES (occurrence: ES)
  Receive Date: 20170307
  Receipt Date: 20170307
  Transmission Date: 20170428
  Serious: Yes (Hospitalization)
  Sender: FDA-Public Use
  Company Number: ES-PFIZER INC-2017089570

PATIENT
  Age: 57 Year
  Sex: Female

DRUGS (7)
  1. RAPAMUNE [Suspect]
     Active Substance: SIROLIMUS
     Indication: ALLOGENIC BONE MARROW TRANSPLANTATION THERAPY
     Dosage: 1 MG, 1X/DAY
     Route: 048
     Dates: start: 201609, end: 20161025
  2. ACICLOVIR [Interacting]
     Active Substance: ACYCLOVIR
     Dosage: 400 MG, 2X/DAY
     Route: 048
     Dates: start: 201609, end: 20161105
  3. TACROLIMUS. [Interacting]
     Active Substance: TACROLIMUS
     Indication: ALLOGENIC BONE MARROW TRANSPLANTATION THERAPY
     Dosage: 0.5 MG, 1X/DAY
     Route: 048
     Dates: start: 201609, end: 20161031
  4. SEPTRIN [Interacting]
     Active Substance: SULFAMETHOXAZOLE\TRIMETHOPRIM
     Dosage: 1 DF (800 MG/160 MG, TABLETS), 1X/DAY
     Route: 048
     Dates: start: 20161026, end: 20161105
  5. FLUCONAZOLE. [Interacting]
     Active Substance: FLUCONAZOLE
     Dosage: 200 MG, 1X/DAY
     Route: 048
     Dates: start: 201609, end: 20161105
  6. RANITIDINE. [Concomitant]
     Active Substance: RANITIDINE
     Dosage: 150 MG, 2X/DAY
     Route: 048
     Dates: start: 201609, end: 20161105
  7. AMBISOME [Interacting]
     Active Substance: AMPHOTERICIN B
     Dosage: 50 MG, WEEKLY
     Route: 042
     Dates: start: 201609, end: 20161031

REACTIONS (2)
  - Drug interaction [Recovered/Resolved]
  - Acute kidney injury [Recovered/Resolved]

NARRATIVE: CASE EVENT DATE: 20161027
